FAERS Safety Report 6484806-3 (Version None)
Quarter: 2009Q4

REPORT INFORMATION
  Report Type: 
  Country: None (occurrence: None)
  Receive Date: 20091209
  Receipt Date: 20090515
  Transmission Date: 20100525
  Serious: Yes (Hospitalization)
  Sender: FDA-Public Use
  Company Number: A0785610A

PATIENT
  Age: 39 Year
  Sex: Female
  Weight: 109.1 kg

DRUGS (3)
  1. AVANDAMET [Suspect]
     Dosage: 1TAB PER DAY
     Route: 048
     Dates: start: 20050127, end: 20050414
  2. AVANDIA [Suspect]
     Dosage: 4MG PER DAY
     Route: 048
     Dates: start: 20050415, end: 20070521
  3. HEMOCYTE [Concomitant]

REACTIONS (1)
  - CARDIAC FAILURE CONGESTIVE [None]
